FAERS Safety Report 5393611-0 (Version None)
Quarter: 2007Q3

REPORT INFORMATION
  Report Type: 
  Country: None (occurrence: None)
  Receive Date: 20070723
  Receipt Date: 20070716
  Transmission Date: 20080115
  Serious: Yes (Death, Life-Threatening, Hospitalization)
  Sender: FDA-Public Use
  Company Number: CH-NOVOPROD-265370

PATIENT
  Sex: Male
  Weight: 72 kg

DRUGS (15)
  1. NOVOSEVEN [Suspect]
     Indication: TRAUMATIC HAEMORRHAGE
     Dosage: 3 DOSES
     Route: 042
     Dates: start: 20070704, end: 20070704
  2. MORPHIN                            /00036302/ [Concomitant]
     Indication: ANALGESIA
     Dosage: 3 MG/H
     Route: 042
     Dates: start: 20070705, end: 20070710
  3. RANITIDINE [Concomitant]
     Indication: PROPHYLAXIS AGAINST GASTROINTESTINAL ULCER
     Route: 042
     Dates: start: 20070707
  4. LORAZEPAM [Concomitant]
     Indication: SEDATION
     Dosage: 1 MG, UNK
     Route: 048
     Dates: start: 20070705
  5. ZOLPIDEM TARTRATE [Concomitant]
     Indication: SEDATION
     Dosage: 10 MG, UNK
     Route: 048
     Dates: start: 20070705
  6. BROMAZEPAN [Concomitant]
     Indication: SEDATION
     Dosage: 3 MG, UNK
     Route: 048
     Dates: start: 20070708
  7. SPIRONOLACTONE [Concomitant]
     Indication: POLYURIA
     Dosage: 200 MG, UNK
     Dates: start: 20070709, end: 20070710
  8. ENOXAPARIN SODIUM [Concomitant]
     Indication: THROMBOSIS PROPHYLAXIS
     Dosage: 40 MG, UNK
     Route: 058
     Dates: start: 20070708
  9. THIAMINE [Concomitant]
     Dosage: 1 CAPS, UNK
     Route: 048
     Dates: start: 20070709
  10. PROPOFOL [Concomitant]
     Indication: SEDATION
     Dosage: 60 MG/H
     Route: 042
     Dates: start: 20070705, end: 20070705
  11. NIPRUSS [Concomitant]
     Indication: HYPERTENSION
     Dosage: 5 UG/MIN
     Route: 042
     Dates: start: 20070705, end: 20070705
  12. LASIX [Concomitant]
     Indication: POLYURIA
     Dosage: 1 MG/H
     Route: 042
     Dates: start: 20070708, end: 20070710
  13. IMOVANE [Concomitant]
     Indication: SLEEP DISORDER
     Dosage: 7.5 MG, UNK
     Route: 048
     Dates: start: 20070712
  14. LEXOTANIL [Concomitant]
     Indication: AGITATION
     Dosage: 3 MG, UNK
     Route: 048
     Dates: start: 20070711
  15. SEROQUEL [Concomitant]
     Indication: AGITATION
     Dosage: 12.5 MG, UNK
     Route: 048
     Dates: start: 20070714

REACTIONS (8)
  - AFFECTIVE DISORDER [None]
  - CARDIAC TAMPONADE [None]
  - CEREBRAL INFARCTION [None]
  - CEREBRAL ISCHAEMIA [None]
  - COMPLETED SUICIDE [None]
  - FATIGUE [None]
  - FLAT AFFECT [None]
  - HAEMODYNAMIC INSTABILITY [None]
